FAERS Safety Report 18073703 (Version 6)
Quarter: 2022Q4

REPORT INFORMATION
  Report Type: Report from Study
  Country: FR (occurrence: FR)
  Receive Date: 20200727
  Receipt Date: 20221114
  Transmission Date: 20230113
  Serious: No
  Sender: FDA-Public Use
  Company Number: FR-SHIRE-FR201850797

PATIENT
  Age: 54 Year
  Sex: Male

DRUGS (26)
  1. TEDUGLUTIDE [Suspect]
     Active Substance: TEDUGLUTIDE
     Indication: Short-bowel syndrome
     Dosage: 3.3 MILLIGRAM, QD
     Route: 042
     Dates: start: 20160317, end: 201810
  2. TEDUGLUTIDE [Suspect]
     Active Substance: TEDUGLUTIDE
     Indication: Short-bowel syndrome
     Dosage: 3.3 MILLIGRAM, QD
     Route: 042
     Dates: start: 20160317, end: 201810
  3. TEDUGLUTIDE [Suspect]
     Active Substance: TEDUGLUTIDE
     Indication: Short-bowel syndrome
     Dosage: 3.3 MILLIGRAM, QD
     Route: 042
     Dates: start: 20160317, end: 201810
  4. TEDUGLUTIDE [Suspect]
     Active Substance: TEDUGLUTIDE
     Indication: Short-bowel syndrome
     Dosage: 3.3 MILLIGRAM, QD
     Route: 042
     Dates: start: 20160317, end: 201810
  5. LEVOCARNITINE [Concomitant]
     Active Substance: LEVOCARNITINE
     Indication: Vitamin supplementation
     Dosage: 1 GRAM, TID
     Route: 048
     Dates: start: 202104, end: 202105
  6. NORFLOXACIN [Concomitant]
     Active Substance: NORFLOXACIN
     Indication: Gastrointestinal disorder
     Dosage: 800 MILLIGRAM, QD
     Route: 048
     Dates: start: 202104
  7. VITAMIN C [Concomitant]
     Active Substance: ASCORBIC ACID
     Indication: Vitamin supplementation
     Dosage: 1 DOSAGE FORM, QD
     Route: 048
     Dates: start: 202104, end: 202105
  8. VITAMIN E [Concomitant]
     Active Substance: .ALPHA.-TOCOPHEROL
     Indication: Vitamin supplementation
     Dosage: 100 MILLIGRAM, MONTHLY
     Route: 048
     Dates: start: 202104
  9. ESOMEPRAZOLE [Concomitant]
     Active Substance: ESOMEPRAZOLE
     Indication: Short-bowel syndrome
     Dosage: 40 MILLIGRAM, QD
     Route: 048
     Dates: start: 201701
  10. ESOMEPRAZOLE [Concomitant]
     Active Substance: ESOMEPRAZOLE
     Dosage: 2 MILLIGRAM, BID
     Route: 048
     Dates: start: 202101, end: 202102
  11. CHOLECALCIFEROL [Concomitant]
     Active Substance: CHOLECALCIFEROL
     Indication: Vitamin supplementation
     Dosage: 1 DOSAGE FORM, 1/WEEK
     Route: 048
     Dates: start: 201701, end: 2018
  12. CREON [Concomitant]
     Active Substance: PANCRELIPASE AMYLASE\PANCRELIPASE LIPASE\PANCRELIPASE PROTEASE
     Indication: Short-bowel syndrome
     Dosage: 25000 INTERNATIONAL UNIT, TID
     Route: 048
     Dates: start: 201703, end: 201808
  13. NORFLOXACIN [Concomitant]
     Active Substance: NORFLOXACIN
     Indication: Gastrointestinal bacterial overgrowth
     Dosage: 1 DOSAGE FORM
     Route: 048
     Dates: start: 201706, end: 2018
  14. FLAGYL [Concomitant]
     Active Substance: METRONIDAZOLE\METRONIDAZOLE HYDROCHLORIDE
     Dosage: 250 MILLIGRAM
     Route: 048
     Dates: start: 2016
  15. CHOLECALCIFEROL [Concomitant]
     Active Substance: CHOLECALCIFEROL
     Dosage: 80000.00 INTERNATIONAL UNIT, QD
     Route: 048
     Dates: start: 201804, end: 2018
  16. VITAMIN B12 [Concomitant]
     Active Substance: CYANOCOBALAMIN
     Indication: Prophylaxis
     Dosage: 1 MILLIGRAM, QD
     Route: 048
     Dates: start: 201804
  17. VITAMIN B12 [Concomitant]
     Active Substance: CYANOCOBALAMIN
     Dosage: UNK
     Route: 048
     Dates: start: 2019
  18. URSODIOL [Concomitant]
     Active Substance: URSODIOL
     Indication: Prophylaxis
     Dosage: 500 MILLIGRAM, TID
     Route: 048
     Dates: start: 201804, end: 2018
  19. PANCRELIPASE [Concomitant]
     Active Substance: PANCRELIPASE
     Dosage: 25000 INTERNATIONAL UNIT
     Route: 048
     Dates: start: 201810
  20. URSODIOL [Concomitant]
     Active Substance: URSODIOL
     Indication: Prophylaxis
     Dosage: 500 MILLIGRAM, TID
     Route: 048
     Dates: start: 201810, end: 202101
  21. VITAMIN D [Concomitant]
     Active Substance: VITAMIN D NOS
     Dosage: 100000 INTERNATIONAL UNIT, 1/WEEK
     Route: 048
     Dates: start: 201810
  22. LANSOPRAZOLE [Concomitant]
     Active Substance: LANSOPRAZOLE
     Indication: Prophylaxis
     Dosage: 30 MILLIGRAM, QD
     Route: 048
     Dates: start: 201901
  23. CHOLECALCIFEROL [Concomitant]
     Active Substance: CHOLECALCIFEROL
     Indication: Prophylaxis
     Dosage: 80000.00 INTERNATIONAL UNIT, 1/WEEK
     Dates: start: 201804
  24. RACECADOTRIL [Concomitant]
     Active Substance: RACECADOTRIL
     Indication: Prophylaxis
     Dosage: 1 DOSAGE FORM
     Route: 048
     Dates: start: 201504
  25. FAMOTIDINE [Concomitant]
     Active Substance: FAMOTIDINE
     Dosage: 20 MILLIGRAM, QD
     Route: 048
     Dates: start: 202104
  26. VITAMIN A [Concomitant]
     Active Substance: VITAMIN A
     Dosage: 100000 INTERNATIONAL UNIT, MONTHLY
     Route: 048

REACTIONS (3)
  - Gastric polyps [Not Recovered/Not Resolved]
  - Large intestine polyp [Not Recovered/Not Resolved]
  - Duodenal polyp [Not Recovered/Not Resolved]

NARRATIVE: CASE EVENT DATE: 20180404
